FAERS Safety Report 4714904-3 (Version None)
Quarter: 2005Q3

REPORT INFORMATION
  Report Type: 
  Country: None (occurrence: None)
  Receive Date: 20050715
  Receipt Date: 20050706
  Transmission Date: 20060218
  Serious: Yes (Other)
  Sender: FDA-Public Use
  Company Number: PHEH2005US07533

PATIENT
  Age: 79 Year
  Sex: Female
  Weight: 44 kg

DRUGS (1)
  1. PAMIDRONATE DISODIUM [Suspect]
     Dosage: 90 MG, QMO
     Route: 042
     Dates: start: 20031101

REACTIONS (1)
  - ASEPTIC NECROSIS BONE [None]
